FAERS Safety Report 10265328 (Version 1)
Quarter: 2014Q2

REPORT INFORMATION
  Report Type: Spontaneous
  Country: US (occurrence: US)
  Receive Date: 20140627
  Receipt Date: 20140627
  Transmission Date: 20141212
  Serious: No
  Sender: FDA-Public Use
  Company Number: US-ASTRAZENECA-2014SE45156

PATIENT
  Age: 24472 Day
  Sex: Female
  Weight: 86.2 kg

DRUGS (17)
  1. SYMBICORT [Suspect]
     Indication: CHRONIC OBSTRUCTIVE PULMONARY DISEASE
     Dosage: 160/4.5, 2 PUFFS BID
     Route: 055
     Dates: start: 20140521
  2. ALBUTEROL SULFATE [Concomitant]
     Indication: LUNG DISORDER
     Dosage: UNKNOWN BID
     Route: 055
     Dates: start: 201404
  3. MONTELUKAST SODIUM [Concomitant]
     Indication: DYSPNOEA
     Route: 048
     Dates: start: 201404
  4. VENTOLIN HFA [Concomitant]
     Indication: DYSPNOEA
     Dosage: 2 PUFFS DAILY
     Route: 055
     Dates: start: 201404
  5. VITAMIN D [Concomitant]
     Indication: CATARACT
     Route: 048
  6. AMLODIPINE BESYLATE [Concomitant]
     Indication: CARDIAC DISORDER
     Route: 048
     Dates: start: 2013
  7. BABY ASPIRIN [Concomitant]
     Indication: BLOOD DISORDER
     Route: 048
     Dates: start: 201402
  8. BYSTOLIC [Concomitant]
     Indication: CARDIAC DISORDER
     Route: 048
     Dates: start: 2013
  9. CALCIUM [Concomitant]
     Indication: BONE DISORDER
     Route: 048
  10. CELEBREX [Concomitant]
     Indication: ARTHRITIS
     Route: 048
     Dates: start: 2012
  11. DIGOXIN [Concomitant]
     Indication: CARDIAC DISORDER
     Route: 048
     Dates: start: 2013
  12. FISH OIL [Concomitant]
     Indication: PROPHYLAXIS
     Route: 048
  13. FLAXSEED OIL [Concomitant]
     Indication: PROPHYLAXIS
     Route: 048
  14. GLUCOSAMINE [Concomitant]
     Indication: PROPHYLAXIS
     Route: 048
  15. LOSARTAN POTASSIUM [Concomitant]
     Indication: CARDIAC DISORDER
     Route: 048
     Dates: start: 2013
  16. MAGNESIUM [Concomitant]
     Indication: BLOOD CALCIUM ABNORMAL
     Route: 048
  17. MAGNESIUM [Concomitant]
     Indication: DYSPEPSIA
     Route: 048

REACTIONS (1)
  - Eye disorder [Not Recovered/Not Resolved]
